FAERS Safety Report 19448816 (Version 1)
Quarter: 2021Q2

REPORT INFORMATION
  Report Type: Spontaneous
  Country: US (occurrence: US)
  Receive Date: 20210622
  Receipt Date: 20210622
  Transmission Date: 20210717
  Serious: Yes (Other)
  Sender: FDA-Public Use
  Company Number: US-JUBILANT CADISTA PHARMACEUTICALS-2021JUB00165

PATIENT
  Age: 48 Year
  Sex: Female

DRUGS (3)
  1. BUPROPION. [Suspect]
     Active Substance: BUPROPION
     Indication: DEPRESSION
     Route: 065
  2. COMBINED ORAL CONTRACEPTIVE PILL [Concomitant]
     Route: 065
  3. PHENTERMINE. [Concomitant]
     Active Substance: PHENTERMINE
     Route: 065

REACTIONS (1)
  - Lupus-like syndrome [Recovered/Resolved]
